FAERS Safety Report 5557823-5 (Version None)
Quarter: 2007Q4

REPORT INFORMATION
  Report Type: 
  Country: None (occurrence: None)
  Receive Date: 20071214
  Receipt Date: 20071210
  Transmission Date: 20080405
  Serious: Yes (Other)
  Sender: FDA-Public Use
  Company Number: US-MERCK-0712USA02659

PATIENT
  Age: 48 Year
  Sex: Female

DRUGS (1)
  1. VYTORIN [Suspect]
     Indication: BLOOD CHOLESTEROL
     Route: 048

REACTIONS (1)
  - APLASTIC ANAEMIA [None]
